FAERS Safety Report 7557085-3 (Version None)
Quarter: 2011Q2

REPORT INFORMATION
  Report Type: 
  Country: None (occurrence: None)
  Receive Date: 20110620
  Receipt Date: 20110614
  Transmission Date: 20111010
  Serious: Yes (Hospitalization, Other)
  Sender: FDA-Public Use
  Company Number: AU-PFIZER INC-2011129285

PATIENT
  Age: 59 Year
  Sex: Female

DRUGS (1)
  1. XANAX [Suspect]
     Dosage: 24 MG, 1X/DAY

REACTIONS (10)
  - ANAEMIA [None]
  - BORDERLINE PERSONALITY DISORDER [None]
  - MENTAL DISORDER [None]
  - DRUG WITHDRAWAL SYNDROME [None]
  - ALCOHOL ABUSE [None]
  - DISTURBANCE IN SOCIAL BEHAVIOUR [None]
  - DRUG DEPENDENCE [None]
  - ANXIETY [None]
  - THERAPEUTIC RESPONSE DECREASED [None]
  - ACTIVITIES OF DAILY LIVING IMPAIRED [None]
